FAERS Safety Report 8891143 (Version 3)
Quarter: 2013Q2

REPORT INFORMATION
  Report Type: Report from Study
  Country: US (occurrence: US)
  Receive Date: 20121107
  Receipt Date: 20130409
  Transmission Date: 20140414
  Serious: Yes (Hospitalization)
  Sender: FDA-Public Use
  Company Number: US-ABBOTT-12P-163-1002201-00

PATIENT
  Age: 36 Year
  Sex: Male
  Weight: 56 kg

DRUGS (18)
  1. HUMIRA [Suspect]
     Indication: CROHN^S DISEASE
     Dates: start: 20121001, end: 20121001
  2. HUMIRA [Suspect]
     Dates: start: 20121015, end: 20121015
  3. HUMIRA [Suspect]
     Dates: start: 20121029
  4. GLUCOTROL [Concomitant]
     Indication: TYPE 2 DIABETES MELLITUS
     Dosage: EVERY MORNING
  5. LANTUS [Concomitant]
     Indication: TYPE 2 DIABETES MELLITUS
     Dosage: 12 UNITS DAILY
  6. HUMULIN R [Concomitant]
     Indication: TYPE 2 DIABETES MELLITUS
  7. COLCRYS [Concomitant]
     Indication: GOUT
     Dosage: 0.6 MG DAILY
  8. ALLOPURINOL [Concomitant]
     Indication: GOUT
     Dosage: 100 MG DAILY
  9. PENTASA [Concomitant]
     Indication: CROHN^S DISEASE
     Dosage: 100 MG DAILY
  10. CIPROFLOXACIN [Concomitant]
     Indication: CROHN^S DISEASE
     Dosage: 500 MG DAILY
  11. FLAGYL [Concomitant]
     Indication: CROHN^S DISEASE
     Dosage: 500 MG DAILY
  12. PRILOSEC [Concomitant]
     Indication: GASTROOESOPHAGEAL REFLUX DISEASE
     Dosage: 40 MG DAILY
  13. CHANTIX [Concomitant]
     Indication: SMOKING CESSATION THERAPY
  14. BUPROFEN [Concomitant]
     Indication: PRODUCT USED FOR UNKNOWN INDICATION
  15. LORTAB 10 [Concomitant]
     Indication: PRODUCT USED FOR UNKNOWN INDICATION
  16. CLARITIN [Concomitant]
     Indication: SINUS CONGESTION
  17. VISTARIL [Concomitant]
     Indication: PRODUCT USED FOR UNKNOWN INDICATION
  18. COMPLEX B [Concomitant]
     Indication: PRODUCT USED FOR UNKNOWN INDICATION

REACTIONS (21)
  - Nephrolithiasis [Recovered/Resolved]
  - Injection site pain [Not Recovered/Not Resolved]
  - Malaise [Not Recovered/Not Resolved]
  - Tremor [Not Recovered/Not Resolved]
  - Headache [Not Recovered/Not Resolved]
  - Muscle spasms [Not Recovered/Not Resolved]
  - Muscle tightness [Not Recovered/Not Resolved]
  - Incorrect dose administered [Unknown]
  - Device malfunction [Unknown]
  - Wrong technique in drug usage process [Unknown]
  - Upper respiratory tract infection [Recovering/Resolving]
  - Cough [Recovering/Resolving]
  - Respiratory tract congestion [Recovering/Resolving]
  - Pyrexia [Recovering/Resolving]
  - Ear infection [Recovering/Resolving]
  - Inappropriate schedule of drug administration [Unknown]
  - Fatigue [Unknown]
  - Nausea [Unknown]
  - Rhinorrhoea [Unknown]
  - Insomnia [Unknown]
  - Lymphadenopathy [Unknown]
